FAERS Safety Report 24578850 (Version 1)
Quarter: 2024Q4

REPORT INFORMATION
  Report Type: Spontaneous
  Country: US (occurrence: US)
  Receive Date: 20241105
  Receipt Date: 20241105
  Transmission Date: 20250114
  Serious: Yes (Hospitalization)
  Sender: JOHNSON AND JOHNSON
  Company Number: US-JNJFOC-20241068398

PATIENT
  Sex: Male

DRUGS (1)
  1. ZYTIGA [Suspect]
     Active Substance: ABIRATERONE ACETATE
     Indication: Product used for unknown indication
     Route: 048

REACTIONS (9)
  - Hospitalisation [Unknown]
  - Blood potassium decreased [Unknown]
  - Confusional state [Unknown]
  - Disorientation [Unknown]
  - Fall [Unknown]
  - Incoherent [Unknown]
  - Abulia [Unknown]
  - Communication disorder [Unknown]
  - Balance disorder [Unknown]
